FAERS Safety Report 7960632-0 (Version None)
Quarter: 2011Q4

REPORT INFORMATION
  Report Type: 
  Country: None (occurrence: None)
  Receive Date: 20111206
  Receipt Date: 20111201
  Transmission Date: 20120403
  Serious: Yes (Life-Threatening)
  Sender: FDA-Public Use
  Company Number: CN-ASTRAZENECA-2011SE72338

PATIENT
  Age: 26 Year
  Sex: Female

DRUGS (2)
  1. PROPOFOL [Suspect]
     Indication: ABORTION INDUCED
     Route: 042
  2. FENTANYL-100 [Suspect]
     Indication: ABORTION INDUCED
     Route: 042

REACTIONS (1)
  - RESPIRATORY DEPRESSION [None]
